FAERS Safety Report 4936587-X (Version None)
Quarter: 2006Q1

REPORT INFORMATION
  Report Type: 
  Country: None (occurrence: None)
  Receive Date: 20060307
  Receipt Date: 20050714
  Transmission Date: 20060701
  Serious: Yes (Hospitalization, Disabling)
  Sender: FDA-Public Use
  Company Number: US-MERCK-0507USA02046

PATIENT
  Age: 58 Year
  Sex: Female

DRUGS (8)
  1. VIOXX [Suspect]
     Route: 048
     Dates: start: 20000101, end: 20020401
  2. ACCUPRIL [Concomitant]
     Route: 065
  3. PROZAC [Concomitant]
     Route: 065
  4. DESYREL [Concomitant]
     Route: 065
  5. SOMA [Concomitant]
     Route: 065
  6. DARVOCET [Concomitant]
     Route: 065
  7. PRILOSEC [Concomitant]
     Route: 065
  8. ULTRAM [Concomitant]
     Route: 065

REACTIONS (28)
  - ACUTE MYOCARDIAL INFARCTION [None]
  - ADJUSTMENT DISORDER [None]
  - ANAEMIA [None]
  - AORTIC ANEURYSM [None]
  - ASTHENIA [None]
  - BALANCE DISORDER [None]
  - BRADYARRHYTHMIA [None]
  - CATARACT [None]
  - CEREBROVASCULAR ACCIDENT [None]
  - CHEST PAIN [None]
  - CONFUSIONAL STATE [None]
  - CORONARY ARTERY DISEASE [None]
  - DEPRESSION [None]
  - DIZZINESS [None]
  - GASTROOESOPHAGEAL REFLUX DISEASE [None]
  - HEADACHE [None]
  - HYPERTENSION [None]
  - HYPOTENSION [None]
  - HYPOTHYROIDISM [None]
  - INSOMNIA [None]
  - LIVER FUNCTION TEST ABNORMAL [None]
  - LOBAR PNEUMONIA [None]
  - NEURALGIA [None]
  - PLEURAL EFFUSION [None]
  - PYELONEPHRITIS [None]
  - SHOULDER PAIN [None]
  - UROSEPSIS [None]
  - VERTIGO [None]
